FAERS Safety Report 6192092-7 (Version None)
Quarter: 2009Q2

REPORT INFORMATION
  Report Type: 
  Country: None (occurrence: None)
  Receive Date: 20090515
  Receipt Date: 20090505
  Transmission Date: 20091009
  Serious: Yes (Death)
  Sender: FDA-Public Use
  Company Number: ES-PFIZER INC-2009207656

PATIENT
  Age: 76 Year

DRUGS (8)
  1. ALPRAZOLAM [Suspect]
     Dosage: UNK
     Route: 048
     Dates: start: 20080901, end: 20090201
  2. ZARATOR [Suspect]
     Indication: HYPERCHOLESTEROLAEMIA
     Dosage: 80 MG, 1X/DAY
     Route: 048
     Dates: start: 20080901, end: 20090201
  3. OMEPRAZOL [Suspect]
     Indication: PROPHYLAXIS
     Dosage: UNK
     Route: 048
     Dates: start: 20080901, end: 20090201
  4. ENALAPRIL [Suspect]
     Indication: HYPERTENSION
     Dosage: 2.5 MG, 1X/DAY
     Route: 048
     Dates: start: 20080901, end: 20090201
  5. ADIRO [Suspect]
     Indication: MYOCARDIAL ISCHAEMIA
     Dosage: 100 MG, 1X/DAY
     Route: 048
     Dates: start: 20080901, end: 20090201
  6. EMCONCOR [Suspect]
     Indication: MYOCARDIAL ISCHAEMIA
     Dosage: 2.5 MG, 1X/DAY
     Route: 048
     Dates: start: 20080901, end: 20090201
  7. CLOPIDOGREL [Suspect]
     Indication: MYOCARDIAL ISCHAEMIA
     Dosage: 75 MG, 1X/DAY
     Route: 048
     Dates: start: 20080901, end: 20090201
  8. SUTRIL [Suspect]
     Dosage: 5 MG, 1X/DAY
     Route: 048
     Dates: start: 20080901, end: 20090201

REACTIONS (4)
  - CHOLURIA [None]
  - HEPATIC NECROSIS [None]
  - JAUNDICE CHOLESTATIC [None]
  - VOMITING [None]
